FAERS Safety Report 5080215-2 (Version None)
Quarter: 2006Q3

REPORT INFORMATION
  Report Type: 
  Country: None (occurrence: None)
  Receive Date: 20060810
  Receipt Date: 20060727
  Transmission Date: 20061208
  Serious: Yes (Other)
  Sender: FDA-Public Use
  Company Number: 228091

PATIENT
  Age: 10 Year
  Sex: Male

DRUGS (1)
  1. NUTROPIN AQ [Suspect]
     Indication: GROWTH HORMONE DEFICIENCY
     Dosage: QD, SUBCUTANEOUS
     Route: 058
     Dates: start: 20050101

REACTIONS (1)
  - ATRIOVENTRICULAR BLOCK [None]
